FAERS Safety Report 9074178 (Version 1)
Quarter: 2013Q1

REPORT INFORMATION
  Report Type: Report from Study
  Country: US (occurrence: US)
  Receive Date: 20130129
  Receipt Date: 20130129
  Transmission Date: 20140127
  Serious: No
  Sender: FDA-Public Use
  Company Number: US-ABBOTT-12P-163-0918880-00

PATIENT
  Sex: Female

DRUGS (3)
  1. HUMIRA 40 MG/ 0.8 ML PRE-FILLED SYRINGE [Suspect]
     Indication: CROHN^S DISEASE
     Dates: end: 201201
  2. PREDNISONE [Concomitant]
     Indication: CROHN^S DISEASE
  3. ENTECORT [Concomitant]
     Indication: CROHN^S DISEASE

REACTIONS (1)
  - Crohn^s disease [Not Recovered/Not Resolved]
